FAERS Safety Report 12346734 (Version 1)
Quarter: 2016Q2

REPORT INFORMATION
  Report Type: Spontaneous
  Country: US (occurrence: US)
  Receive Date: 20160509
  Receipt Date: 20160509
  Transmission Date: 20160815
  Serious: Yes (Hospitalization)
  Sender: FDA-Public Use
  Company Number: US-FRESENIUS MEDICAL CARE NORTH AMERICA-1051649

PATIENT
  Age: 74 Year
  Sex: Female

DRUGS (1)
  1. DELFLEX [Suspect]
     Active Substance: CALCIUM CHLORIDE\DEXTROSE\MAGNESIUM CHLORIDE\SODIUM CHLORIDE\SODIUM LACTATE
     Route: 033

REACTIONS (6)
  - Device malfunction [None]
  - Pleural effusion [None]
  - Peritonitis bacterial [Recovering/Resolving]
  - Device related infection [None]
  - Inadequate aseptic technique in use of product [None]
  - Fluid overload [Recovered/Resolved]

NARRATIVE: CASE EVENT DATE: 20160313
